FAERS Safety Report 14118517 (Version 5)
Quarter: 2017Q4

REPORT INFORMATION
  Report Type: Report from Study
  Country: GB (occurrence: GB)
  Receive Date: 20171024
  Receipt Date: 20171205
  Transmission Date: 20180321
  Serious: Yes (Hospitalization)
  Sender: FDA-Public Use
  Company Number: GB-AMGEN-GBRCT2017159221

PATIENT
  Age: 63 Year
  Sex: Male
  Weight: 57 kg

DRUGS (16)
  1. ASPIRIN. [Concomitant]
     Active Substance: ASPIRIN
     Dosage: UNK
     Dates: start: 20020501
  2. AMITRIPTYLINE [Concomitant]
     Active Substance: AMITRIPTYLINE
     Dosage: 10 MG, 1X/DAY NIGHT
     Dates: start: 20100601
  3. DOXAZOSIN [Concomitant]
     Active Substance: DOXAZOSIN\DOXAZOSIN MESYLATE
     Dosage: 2 MG, 1X/DAY
     Dates: start: 20160401
  4. ETANERCEPT [Suspect]
     Active Substance: ETANERCEPT
     Indication: CUTANEOUS LUPUS ERYTHEMATOSUS
     Dosage: 1 MG, UNK
     Route: 023
     Dates: start: 20170818, end: 20170818
  5. ETANERCEPT [Suspect]
     Active Substance: ETANERCEPT
     Dosage: 10 MG, UNK
     Route: 023
     Dates: start: 20170901, end: 20170901
  6. ETANERCEPT [Suspect]
     Active Substance: ETANERCEPT
     Dosage: 10 MG, UNK
     Route: 023
     Dates: start: 20170908, end: 20170908
  7. ATORVASTATIN [Concomitant]
     Active Substance: ATORVASTATIN
     Dosage: 10 MG, 1X/DAY
     Dates: start: 20020501
  8. PREDNISOLONE. [Concomitant]
     Active Substance: PREDNISOLONE
     Dosage: 10 MG, 1X/DAY
     Dates: start: 20170518
  9. CHLOROQUINE SULFATE [Concomitant]
     Active Substance: CHLOROQUINE SULFATE
     Dosage: 250 MG, 1X/DAY
     Dates: start: 20150101
  10. CALCEOS [Concomitant]
     Active Substance: CALCIUM CARBONATE\CHOLECALCIFEROL
     Dosage: 1 DF, 2X/DAY
     Dates: start: 20170803
  11. SILDENAFIL. [Concomitant]
     Active Substance: SILDENAFIL
     Dosage: 25 MG, 3X/DAY
     Dates: start: 20140130
  12. ETANERCEPT [Suspect]
     Active Substance: ETANERCEPT
     Dosage: 10 MG, UNK
     Route: 023
     Dates: start: 20170920, end: 20170929
  13. AMLODIPINE [Concomitant]
     Active Substance: AMLODIPINE BESYLATE
     Dosage: UNK
     Dates: start: 20020501
  14. TRAMADOL. [Concomitant]
     Active Substance: TRAMADOL
     Dosage: 50 MG, 4 TIMES A DAY AS NEEDED
     Dates: start: 20140201
  15. ILOPROST. [Concomitant]
     Active Substance: ILOPROST
     Indication: SYSTEMIC LUPUS ERYTHEMATOSUS
     Dosage: 150 UG, OVER 3 DAYS
     Route: 042
     Dates: start: 20171006, end: 20171008
  16. ALENDRONIC ACID [Concomitant]
     Active Substance: ALENDRONIC ACID
     Dosage: 70 MG, WEEKLY
     Dates: start: 20170803

REACTIONS (3)
  - Atrial fibrillation [Recovered/Resolved]
  - Cardiac failure congestive [Recovered/Resolved]
  - Pneumonia [Recovered/Resolved]

NARRATIVE: CASE EVENT DATE: 20171010
